FAERS Safety Report 8608017-8 (Version None)
Quarter: 2012Q3

REPORT INFORMATION
  Report Type: 
  Country: None (occurrence: None)
  Receive Date: 20120807
  Receipt Date: 20120731
  Transmission Date: 20120928
  Serious: Yes (Hospitalization)
  Sender: FDA-Public Use
  Company Number: B0819780A

PATIENT
  Age: 49 Year
  Sex: Female

DRUGS (3)
  1. LAMIVUDINE [Suspect]
     Indication: HIV INFECTION
     Dates: start: 20011001
  2. INDINAVIR SULFATE (FORMULATION UNKNOWN) (INDINAVIR SULFATE) (GENERIC) [Suspect]
     Indication: HIV INFECTION
     Dates: start: 20011001
  3. DIDANOSINE [Suspect]
     Indication: HIV INFECTION
     Dates: start: 20011001

REACTIONS (14)
  - HYPOAESTHESIA [None]
  - CEREBELLAR SYNDROME [None]
  - VASCULITIS CEREBRAL [None]
  - DEMENTIA [None]
  - IMMUNE RECONSTITUTION SYNDROME [None]
  - OEDEMA [None]
  - CEREBRAL ATROPHY [None]
  - PUPILS UNEQUAL [None]
  - BRAIN ABSCESS [None]
  - DECREASED VIBRATORY SENSE [None]
  - RHODOCOCCUS INFECTION [None]
  - PNEUMONIA [None]
  - HEMIPARESIS [None]
  - CENTRAL NERVOUS SYSTEM LESION [None]
